FAERS Safety Report 23992067 (Version 1)
Quarter: 2024Q2

REPORT INFORMATION
  Report Type: Spontaneous
  Country: US (occurrence: US)
  Receive Date: 20240620
  Receipt Date: 20240620
  Transmission Date: 20240716
  Serious: No
  Sender: FDA-Public Use
  Company Number: US-ROCHE-10000000594

PATIENT
  Sex: Female

DRUGS (1)
  1. EVRYSDI [Suspect]
     Active Substance: RISDIPLAM
     Indication: Spinal muscular atrophy
     Dosage: SECOND DOSE RECEIVED IN 2018 AND THE LAST ONE RECEIVED IN 2020
     Route: 065
     Dates: start: 2016

REACTIONS (1)
  - Areflexia [Unknown]
